FAERS Safety Report 10749072 (Version 1)
Quarter: 2015Q1

REPORT INFORMATION
  Report Type: Spontaneous
  Country: US (occurrence: None)
  Receive Date: 20150128
  Receipt Date: 20150128
  Transmission Date: 20150721
  Serious: No
  Sender: FDA-Public Use
  Company Number: None

PATIENT
  Age: 56 Year
  Sex: Male
  Weight: 68.04 kg

DRUGS (1)
  1. METHIPHENIDATE 20MG SR MALLINCKRODT [Suspect]
     Active Substance: METHYLPHENIDATE
     Indication: NARCOLEPSY
     Dosage: 2
     Route: 048
     Dates: start: 20141220, end: 20150120

REACTIONS (4)
  - Product substitution issue [None]
  - Constipation [None]
  - Product quality issue [None]
  - Decreased appetite [None]

NARRATIVE: CASE EVENT DATE: 20150126
